FAERS Safety Report 15693533 (Version 1)
Quarter: 2018Q4

REPORT INFORMATION
  Report Type: Spontaneous
  Country: JP (occurrence: JP)
  Receive Date: 20181206
  Receipt Date: 20181206
  Transmission Date: 20190205
  Serious: Yes (Death, Life-Threatening, Hospitalization, Other)
  Sender: FDA-Public Use
  Company Number: JP-ROCHE-2225723

PATIENT
  Age: 41 Year
  Sex: Male
  Weight: 42 kg

DRUGS (13)
  1. METHYLPREDNISOLONE SUCCINATE (UNK INGREDIENTS) [Concomitant]
     Route: 042
     Dates: start: 20041201, end: 20041201
  2. METHYLPREDNISOLONE SUCCINATE (UNK INGREDIENTS) [Concomitant]
     Route: 042
     Dates: start: 20041202, end: 20041202
  3. CICLOSPORIN [Concomitant]
     Active Substance: CYCLOSPORINE
     Indication: TRANSPLANT REJECTION
     Route: 042
     Dates: start: 20041125
  4. RITUXAN [Suspect]
     Active Substance: RITUXIMAB
     Route: 041
     Dates: start: 20041202, end: 20041202
  5. MILRINONE [Concomitant]
     Active Substance: MILRINONE
     Indication: UNIVENTRICULAR HEART
     Route: 042
  6. CICLOSPORIN [Concomitant]
     Active Substance: CYCLOSPORINE
     Route: 042
     Dates: start: 20041127
  7. HUMAN NORMAL IMMUNOGLOBULIN [Concomitant]
     Active Substance: HUMAN IMMUNOGLOBULIN G
     Route: 042
     Dates: start: 20041201
  8. MYCOPHENOLATE MOFETIL. [Concomitant]
     Active Substance: MYCOPHENOLATE MOFETIL
     Route: 048
     Dates: start: 20041127, end: 20041130
  9. DOBUTAMINE [Concomitant]
     Active Substance: DOBUTAMINE\DOBUTAMINE HYDROCHLORIDE
     Indication: UNIVENTRICULAR HEART
     Route: 042
  10. MYCOPHENOLATE MOFETIL. [Concomitant]
     Active Substance: MYCOPHENOLATE MOFETIL
     Indication: TRANSPLANT REJECTION
     Route: 048
  11. THYMOGLOBULINE [Concomitant]
     Active Substance: LAPINE T-LYMPHOCYTE IMMUNE GLOBULIN
     Indication: TRANSPLANT REJECTION
     Route: 042
     Dates: start: 20041128
  12. RITUXAN [Suspect]
     Active Substance: RITUXIMAB
     Indication: TRANSPLANT REJECTION
     Route: 041
     Dates: start: 20041201, end: 20041201
  13. CICLOSPORIN [Concomitant]
     Active Substance: CYCLOSPORINE
     Route: 042
     Dates: start: 20041201, end: 20041204

REACTIONS (14)
  - Candida pneumonia [Recovering/Resolving]
  - Blood urea increased [Unknown]
  - Melaena [Unknown]
  - Renal impairment [Not Recovered/Not Resolved]
  - C-reactive protein increased [Recovering/Resolving]
  - Platelet count decreased [Recovered/Resolved]
  - Herpes zoster [Unknown]
  - Off label use [Unknown]
  - Alanine aminotransferase increased [Recovered/Resolved]
  - Infection [Fatal]
  - Blood creatinine increased [Not Recovered/Not Resolved]
  - White blood cell count decreased [Recovered/Resolved]
  - Blood bilirubin increased [Recovering/Resolving]
  - Blood lactate dehydrogenase increased [Unknown]

NARRATIVE: CASE EVENT DATE: 20041205
